FAERS Safety Report 6566843-3 (Version None)
Quarter: 2010Q1

REPORT INFORMATION
  Report Type: 
  Country: None (occurrence: None)
  Receive Date: 20100202
  Receipt Date: 20100122
  Transmission Date: 20100710
  Serious: Yes (Congenital Anomaly)
  Sender: FDA-Public Use
  Company Number: A0842211A

PATIENT
  Sex: Female
  Weight: 3.2 kg

DRUGS (4)
  1. RETROVIR [Suspect]
     Indication: ANTIRETROVIRAL THERAPY
     Dosage: 2MGKH PER DAY
     Route: 042
  2. RETROVIR [Suspect]
     Dosage: 1MGKH PER DAY
     Route: 042
  3. EFAVIRENZ [Suspect]
     Indication: ANTIRETROVIRAL THERAPY
     Route: 048
  4. TRUVADA [Suspect]
     Indication: ANTIRETROVIRAL THERAPY
     Route: 048

REACTIONS (4)
  - CARDIAC DISORDER [None]
  - HYPOPLASTIC RIGHT HEART SYNDROME [None]
  - MATERNAL DRUGS AFFECTING FOETUS [None]
  - RIGHT VENTRICULAR FAILURE [None]
